FAERS Safety Report 7030832-5 (Version None)
Quarter: 2010Q4

REPORT INFORMATION
  Report Type: 
  Country: None (occurrence: None)
  Receive Date: 20101006
  Receipt Date: 20100920
  Transmission Date: 20110411
  Serious: No
  Sender: FDA-Public Use
  Company Number: US-PFIZER INC-2010106457

PATIENT
  Sex: Male

DRUGS (1)
  1. DETROL LA [Suspect]
     Dosage: 2 MG, 2X/DAY

REACTIONS (3)
  - DRUG DISPENSING ERROR [None]
  - DRUG INEFFECTIVE [None]
  - DYSPEPSIA [None]
